FAERS Safety Report 6699000-0 (Version None)
Quarter: 2010Q2

REPORT INFORMATION
  Report Type: 
  Country: None (occurrence: None)
  Receive Date: 20100427
  Receipt Date: 20100414
  Transmission Date: 20101027
  Serious: Yes (Hospitalization)
  Sender: FDA-Public Use
  Company Number: JP-WATSON-2010-05050

PATIENT
  Age: 57 Year
  Sex: Male

DRUGS (1)
  1. CLONAZEPAM [Suspect]
     Indication: EPILEPSY
     Dosage: UNK
     Dates: start: 20060623, end: 20060628

REACTIONS (4)
  - PYREXIA [None]
  - RASH [None]
  - RENAL IMPAIRMENT [None]
  - THROMBOCYTOPENIA [None]
